FAERS Safety Report 5449656-5 (Version None)
Quarter: 2007Q3

REPORT INFORMATION
  Report Type: 
  Country: None (occurrence: None)
  Receive Date: 20070910
  Receipt Date: 20070831
  Transmission Date: 20080115
  Serious: Yes (Hospitalization)
  Sender: FDA-Public Use
  Company Number: SPV1-2007-03919

PATIENT
  Age: 64 Year
  Sex: Female
  Weight: 65 kg

DRUGS (6)
  1. FOSRENOL [Suspect]
     Dosage: 1500 MG, ORAL
     Route: 048
     Dates: start: 20070417
  2. DREISAVIT N (AMMONIUM PERSULFATE, ASCORBIC ACID, BIOTIN CALCIUM PANTOT [Concomitant]
  3. OMEP (OMEPRAZOLE) [Concomitant]
  4. NORALGIN [Concomitant]
  5. ARANESP [Concomitant]
  6. FERRLECIT (FERROUS SUCCINATE) [Concomitant]

REACTIONS (1)
  - ANGINA PECTORIS [None]
